FAERS Safety Report 8531640-6 (Version None)
Quarter: 2012Q3

REPORT INFORMATION
  Report Type: 
  Country: None (occurrence: None)
  Receive Date: 20120723
  Receipt Date: 20120711
  Transmission Date: 20120928
  Serious: No
  Sender: FDA-Public Use
  Company Number: US-B.I. PHARMACEUTICALS,INC./RIDGEFIELD-2012-BP-15496BP

PATIENT
  Sex: Female

DRUGS (6)
  1. ASPIRIN [Concomitant]
     Indication: ANTICOAGULANT THERAPY
     Dosage: 81 MG
     Route: 048
  2. ADVAIR DISKUS 100/50 [Concomitant]
     Indication: EMPHYSEMA
     Route: 055
  3. PRAVASTATIN [Concomitant]
     Indication: BLOOD CHOLESTEROL
     Dosage: 20 MG
     Route: 048
  4. SPIRIVA [Suspect]
     Indication: EMPHYSEMA
     Dosage: 18 MCG
     Route: 055
  5. ENALAPRIL MALEATE [Concomitant]
     Indication: BLOOD PRESSURE
     Dosage: 20 MG
     Route: 048
  6. ALBUTEROL [Concomitant]
     Indication: EMPHYSEMA
     Route: 055

REACTIONS (4)
  - ANGIOPATHY [None]
  - VISUAL IMPAIRMENT [None]
  - DRY EYE [None]
  - CATARACT [None]
